FAERS Safety Report 17459814 (Version 1)
Quarter: 2020Q1

REPORT INFORMATION
  Report Type: Spontaneous
  Country: US (occurrence: US)
  Receive Date: 20200226
  Receipt Date: 20200226
  Transmission Date: 20200409
  Serious: No
  Sender: FDA-Public Use
  Company Number: US-SA-2020SA041341

PATIENT
  Age: 76 Year
  Sex: Male

DRUGS (1)
  1. PRALUENT [Suspect]
     Active Substance: ALIROCUMAB
     Indication: BLOOD CHOLESTEROL INCREASED
     Dosage: 75 MG, QOW
     Dates: start: 2016

REACTIONS (7)
  - Paraesthesia [Unknown]
  - Irritability [Unknown]
  - Pain [Unknown]
  - Hypoaesthesia [Unknown]
  - Low density lipoprotein decreased [Unknown]
  - Arthralgia [Unknown]
  - Asthenia [Unknown]
